FAERS Safety Report 21048852 (Version 1)
Quarter: 2022Q3

REPORT INFORMATION
  Report Type: Spontaneous
  Country: US (occurrence: None)
  Receive Date: 20220706
  Receipt Date: 20220706
  Transmission Date: 20221026
  Serious: No
  Sender: FDA-Public Use
  Company Number: None

PATIENT
  Age: 79 Year
  Sex: Female
  Weight: 79.38 kg

DRUGS (1)
  1. RASUVO [Suspect]
     Active Substance: METHOTREXATE SODIUM
     Indication: Rheumatoid arthritis
     Dosage: FREQUENCY : WEEKLY;?INJECT 20MG (0.4ML) SUBCUTANEOUSLY ONCE WEEKLY ON?THE SAME DAY EACH WEEK AS DIRE
     Route: 058
     Dates: start: 202110

REACTIONS (2)
  - Therapy interrupted [None]
  - Hospitalisation [None]
